FAERS Safety Report 9337649 (Version 2)
Quarter: 2013Q2

REPORT INFORMATION
  Report Type: Spontaneous
  Country: US (occurrence: US)
  Receive Date: 20130607
  Receipt Date: 20130626
  Transmission Date: 20140414
  Serious: Yes (Hospitalization, Other)
  Sender: FDA-Public Use
  Company Number: US-009507513-1306USA001530

PATIENT
  Age: 61 Year
  Sex: Female

DRUGS (5)
  1. VICTRELIS [Suspect]
     Indication: HEPATITIS C
     Dosage: UNK
     Route: 048
     Dates: start: 20130527
  2. REBETOL [Suspect]
     Indication: HEPATITIS C
     Dosage: UNK
     Route: 048
     Dates: start: 20130519
  3. TELAPREVIR [Suspect]
     Indication: HEPATITIS C
     Dosage: UNK
     Dates: start: 20130501, end: 20130506
  4. PEGASYS [Suspect]
     Indication: HEPATITIS C
     Dosage: 180
     Route: 048
     Dates: start: 20130519
  5. PEGASYS [Suspect]
     Dosage: 80
     Route: 048

REACTIONS (14)
  - Rash [Unknown]
  - Anaemia [Unknown]
  - Pruritus [Unknown]
  - Tremor [Unknown]
  - Nervousness [Unknown]
  - Depression [Unknown]
  - Decreased appetite [Unknown]
  - Constipation [Unknown]
  - Diarrhoea [Unknown]
  - Leukopenia [Unknown]
  - White blood cell count decreased [Unknown]
  - Headache [Unknown]
  - Dizziness [Unknown]
  - Upper extremity mass [Unknown]
